FAERS Safety Report 4636873-7 (Version None)
Quarter: 2005Q2

REPORT INFORMATION
  Report Type: 
  Country: None (occurrence: None)
  Receive Date: 20050413
  Receipt Date: 20050413
  Transmission Date: 20051028
  Serious: Yes (Life-Threatening)
  Sender: FDA-Public Use
  Company Number: None

PATIENT
  Age: 48 Year
  Sex: Female
  Weight: 66.6788 kg

DRUGS (1)
  1. BEXTRA [Suspect]
     Indication: ARTHRITIS
     Dosage: 1/DAY   BY MOUTH  ORAL
     Route: 048
     Dates: start: 20050316, end: 20050411

REACTIONS (5)
  - BLOOD PRESSURE INCREASED [None]
  - MIGRAINE [None]
  - RASH GENERALISED [None]
  - RASH MACULO-PAPULAR [None]
  - THROAT TIGHTNESS [None]
